FAERS Safety Report 23993717 (Version 1)
Quarter: 2024Q2

REPORT INFORMATION
  Report Type: Report from Study
  Country: US (occurrence: US)
  Receive Date: 20240620
  Receipt Date: 20240620
  Transmission Date: 20240716
  Serious: Yes (Death, Hospitalization, Other)
  Sender: FDA-Public Use
  Company Number: US-MYLANLABS-2024M1055354

PATIENT
  Age: 31 Year
  Sex: Male

DRUGS (8)
  1. DOXORUBICIN [Suspect]
     Active Substance: DOXORUBICIN
     Indication: Colorectal cancer
     Dosage: 15 MILLIGRAM/SQ. METER
     Route: 033
     Dates: start: 2013
  2. FLUOROURACIL [Suspect]
     Active Substance: FLUOROURACIL
     Indication: Colorectal cancer
     Dosage: 400 MILLIGRAM/SQ. METER
     Route: 042
     Dates: start: 2013
  3. OXALIPLATIN [Suspect]
     Active Substance: OXALIPLATIN
     Indication: Colorectal cancer
     Dosage: UNK
     Route: 065
  4. IRINOTECAN [Suspect]
     Active Substance: IRINOTECAN
     Indication: Colorectal cancer
     Dosage: UNK
     Route: 065
  5. CAPECITABINE [Suspect]
     Active Substance: CAPECITABINE
     Indication: Colorectal cancer
     Dosage: UNK
     Route: 065
  6. MITOMYCIN C [Suspect]
     Active Substance: MITOMYCIN
     Indication: Colorectal cancer
     Dosage: 15 MILLIGRAM/SQ. METER
     Route: 033
     Dates: start: 2013
  7. LEUCOVORIN [Suspect]
     Active Substance: LEUCOVORIN\LEUCOVORIN CALCIUM
     Indication: Colorectal cancer
     Dosage: 20 MILLIGRAM/SQ. METER
     Route: 042
     Dates: start: 2013
  8. DEXTROSE [Concomitant]
     Active Substance: DEXTROSE\DEXTROSE MONOHYDRATE
     Indication: Vehicle solution use
     Dosage: 1.5L/M2
     Route: 065
     Dates: start: 2013

REACTIONS (2)
  - Drug ineffective [Fatal]
  - Toxicity to various agents [Unknown]
